FAERS Safety Report 8833882 (Version 1)
Quarter: 2012Q4

REPORT INFORMATION
  Report Type: Spontaneous
  Country: US (occurrence: None)
  Receive Date: 20121010
  Receipt Date: 20121010
  Transmission Date: 20130627
  Serious: Yes (Other)
  Sender: FDA-Public Use
  Company Number: None

PATIENT
  Age: 57 Year
  Sex: Male
  Weight: 90.72 kg

DRUGS (1)
  1. ATORVASTATIN [Suspect]
     Indication: HIGH CHOLESTEROL
     Dates: start: 20120920, end: 20121004

REACTIONS (7)
  - Headache [None]
  - Palpitations [None]
  - Discomfort [None]
  - Hypersensitivity [None]
  - Product contamination [None]
  - Product quality issue [None]
  - Product substitution issue [None]
